FAERS Safety Report 6124316-6 (Version None)
Quarter: 2009Q1

REPORT INFORMATION
  Report Type: 
  Country: None (occurrence: None)
  Receive Date: 20090317
  Receipt Date: 20081024
  Transmission Date: 20090719
  Serious: Yes (Other)
  Sender: FDA-Public Use
  Company Number: 1000004526

PATIENT
  Sex: 0

DRUGS (1)
  1. BYSTOLIC [Suspect]
     Indication: CORONARY ARTERY DISEASE

REACTIONS (2)
  - ASCITES [None]
  - PORTAL HYPERTENSION [None]
